FAERS Safety Report 12395253 (Version 3)
Quarter: 2021Q2

REPORT INFORMATION
  Report Type: Report from Study
  Country: None (occurrence: AU)
  Receive Date: 20160523
  Receipt Date: 20210503
  Transmission Date: 20210716
  Serious: Yes (Other)
  Sender: FDA-Public Use
  Company Number: AU-ABBVIE-16P-008-1634012-00

PATIENT
  Age: 63 Year
  Sex: Male

DRUGS (2)
  1. DUODOPA [Suspect]
     Active Substance: CARBIDOPA\LEVODOPA
     Indication: PARKINSON^S DISEASE
     Route: 050
     Dates: start: 20141127
  2. DUODOPA [Suspect]
     Active Substance: CARBIDOPA\LEVODOPA

REACTIONS (2)
  - Weight decreased [Unknown]
  - Deep brain stimulation [Unknown]

NARRATIVE: CASE EVENT DATE: 201512
